FAERS Safety Report 10296178 (Version 3)
Quarter: 2014Q3

REPORT INFORMATION
  Report Type: Report from Study
  Country: GB (occurrence: GB)
  Receive Date: 20140711
  Receipt Date: 20140822
  Transmission Date: 20150326
  Serious: Yes (Death, Hospitalization)
  Sender: FDA-Public Use
  Company Number: GB-ROCHE-1419263

PATIENT
  Age: 87 Year
  Sex: Male

DRUGS (7)
  1. LOPERAMIDE [Concomitant]
     Active Substance: LOPERAMIDE
     Route: 065
     Dates: start: 20090119, end: 20131126
  2. LEVOTHYROXIN [Concomitant]
     Active Substance: LEVOTHYROXINE
     Route: 065
     Dates: start: 1985, end: 20131126
  3. ROPINIROLE. [Concomitant]
     Active Substance: ROPINIROLE
     Route: 065
     Dates: start: 20071203
  4. WARFARIN [Concomitant]
     Active Substance: WARFARIN
     Route: 065
     Dates: start: 20000118, end: 20131126
  5. BISOPROLOL [Concomitant]
     Active Substance: BISOPROLOL
     Route: 065
     Dates: start: 20040628, end: 20131126
  6. RANIBIZUMAB [Suspect]
     Active Substance: RANIBIZUMAB
     Indication: AGE-RELATED MACULAR DEGENERATION
     Dosage: LAST DOSE OF RANIBIZUMAB: 27/SEP/2012
     Route: 050
     Dates: start: 200806, end: 20131022
  7. SERTRALINE [Concomitant]
     Active Substance: SERTRALINE HYDROCHLORIDE
     Route: 065
     Dates: start: 20090119, end: 20131126

REACTIONS (6)
  - Pneumonia [Fatal]
  - Circulatory collapse [Unknown]
  - Cardiac failure congestive [Fatal]
  - Hypertension [Recovering/Resolving]
  - Atrial fibrillation [Fatal]
  - Renal impairment [Unknown]

NARRATIVE: CASE EVENT DATE: 20131022
